FAERS Safety Report 6212409-4 (Version None)
Quarter: 2009Q2

REPORT INFORMATION
  Report Type: 
  Country: None (occurrence: None)
  Receive Date: 20090601
  Receipt Date: 20090601
  Transmission Date: 20091009
  Serious: Yes (Hospitalization, Other)
  Sender: FDA-Public Use
  Company Number: None

PATIENT
  Age: 78 Year
  Sex: Female
  Weight: 59 kg

DRUGS (1)
  1. FOSAMAX [Suspect]
     Indication: OSTEOPENIA
     Dosage: 70 MG WEEKLY PO
     Route: 048
     Dates: start: 20050102, end: 20090523

REACTIONS (9)
  - ASPIRATION [None]
  - BODY TEMPERATURE INCREASED [None]
  - COLLAPSE OF LUNG [None]
  - COUGH [None]
  - INFLAMMATION [None]
  - MEDICATION ERROR [None]
  - MUCOSAL EXFOLIATION [None]
  - OEDEMA MUCOSAL [None]
  - PULMONARY MASS [None]
